FAERS Safety Report 8389339 (Version 2)
Quarter: 2012Q4

REPORT INFORMATION
  Report Type: 
  Country: US (occurrence: US)
  Receive Date: 20120203
  Receipt Date: 20120918
  Transmission Date: 20130627
  Serious: Yes (Other)
  Sender: FDA-Public Use
  Company Number: US-ROCHE-784657

PATIENT
  Age: 13 Year
  Sex: Female
  Weight: 70.37 kg

DRUGS (3)
  1. ACCUTANE [Suspect]
     Indication: ACNE
     Dosage: form strength: 20mg and 40mg
     Route: 065
     Dates: start: 199709, end: 19980218
  2. ACCUTANE [Suspect]
     Dosage: 40mg qd increased to 50 mg qd for 5 months
     Route: 065
     Dates: start: 199808, end: 199902
  3. ACCUTANE [Suspect]
     Route: 065
     Dates: start: 200401, end: 200404

REACTIONS (10)
  - Colitis ulcerative [Unknown]
  - Inflammatory bowel disease [Unknown]
  - Stress [Unknown]
  - Blood cholesterol increased [Unknown]
  - Dry skin [Unknown]
  - Dry eye [Unknown]
  - Anxiety [Unknown]
  - Headache [Unknown]
  - Lip dry [Unknown]
  - Xerosis [Unknown]
